FAERS Safety Report 22275916 (Version 2)
Quarter: 2023Q2

REPORT INFORMATION
  Report Type: Spontaneous
  Country: PT (occurrence: PT)
  Receive Date: 20230502
  Receipt Date: 20230515
  Transmission Date: 20230721
  Serious: Yes (Hospitalization, Other)
  Sender: FDA-Public Use
  Company Number: PT-009507513-2304PRT004720

PATIENT
  Age: 55 Year
  Sex: Male

DRUGS (3)
  1. DORAVIRINE [Suspect]
     Active Substance: DORAVIRINE
     Indication: Antiretroviral therapy
     Dosage: 100 MG/DAY
     Route: 048
     Dates: start: 202110
  2. EMTRICITABINE\TENOFOVIR [Concomitant]
     Active Substance: EMTRICITABINE\TENOFOVIR
     Indication: Antiretroviral therapy
     Dosage: UNK
     Dates: start: 200904
  3. ATORVASTATIN [Concomitant]
     Active Substance: ATORVASTATIN
     Dosage: 20 MG/DAY

REACTIONS (3)
  - Coronary artery disease [Unknown]
  - Dyslipidaemia [Unknown]
  - Inflammation [Unknown]
